FAERS Safety Report 8919811 (Version 2)
Quarter: 2012Q4

REPORT INFORMATION
  Report Type: 
  Country: US (occurrence: US)
  Receive Date: 20121121
  Receipt Date: 20121218
  Transmission Date: 20130627
  Serious: Yes (Death)
  Sender: FDA-Public Use
  Company Number: US-009507513-1211USA007685

PATIENT
  Age: 45 None
  Sex: Male

DRUGS (3)
  1. VICTRELIS [Suspect]
     Indication: HEPATITIS C
     Dosage: 800 mg, tid, week 18
     Dates: start: 20120713
  2. RIBAVIRIN [Suspect]
     Dosage: UNK
     Dates: start: 20120608
  3. PEGASYS [Suspect]
     Dosage: UNK
     Dates: start: 20120608

REACTIONS (3)
  - Death [Fatal]
  - Oedema peripheral [Unknown]
  - Skin ulcer [Unknown]
